FAERS Safety Report 5911238-6 (Version None)
Quarter: 2008Q4

REPORT INFORMATION
  Report Type: 
  Country: None (occurrence: None)
  Receive Date: 20081007
  Receipt Date: 20080929
  Transmission Date: 20090506
  Serious: Yes (Hospitalization)
  Sender: FDA-Public Use
  Company Number: US-GENENTECH-268823

PATIENT
  Age: 65 Year
  Sex: Female
  Weight: 82.2 kg

DRUGS (2)
  1. BEVACIZUMAB [Suspect]
     Indication: OVARIAN CANCER
     Dosage: 800 MG, DAYS 1+15
     Route: 042
     Dates: start: 20061002
  2. TOPOTECAN [Suspect]
     Indication: OVARIAN CANCER
     Dosage: 7 MG, DAYS1,8,15
     Route: 042
     Dates: start: 20061002

REACTIONS (2)
  - ARTERIAL INJURY [None]
  - ISCHAEMIA [None]
